FAERS Safety Report 6212935-8 (Version None)
Quarter: 2009Q2

REPORT INFORMATION
  Report Type: 
  Country: None (occurrence: None)
  Receive Date: 20090602
  Receipt Date: 20090602
  Transmission Date: 20091009
  Serious: Yes (Hospitalization)
  Sender: FDA-Public Use
  Company Number: None

PATIENT
  Age: 72 Year
  Sex: Male
  Weight: 85.2 kg

DRUGS (2)
  1. SULFAMETHOXAZOLE AND TRIMETHOPRIM [Suspect]
     Indication: ANTIFUNGAL PROPHYLAXIS
     Dosage: 1 TAB EVERY DAY PO
     Route: 048
     Dates: start: 20090310, end: 20090324
  2. SULFAMETHOXAZOLE AND TRIMETHOPRIM [Suspect]
     Indication: HIV INFECTION
     Dosage: 1 TAB EVERY DAY PO
     Route: 048
     Dates: start: 20090310, end: 20090324

REACTIONS (6)
  - ABDOMINAL PAIN UPPER [None]
  - ACUTE FEBRILE NEUTROPHILIC DERMATOSIS [None]
  - MYALGIA [None]
  - NAUSEA [None]
  - OCULAR HYPERAEMIA [None]
  - VOMITING [None]
